FAERS Safety Report 6988505-0 (Version None)
Quarter: 2010Q3

REPORT INFORMATION
  Report Type: 
  Country: None (occurrence: None)
  Receive Date: 20100916
  Receipt Date: 20100907
  Transmission Date: 20110219
  Serious: Yes (Disabling)
  Sender: FDA-Public Use
  Company Number: DK-BAYER-201034204GPV

PATIENT
  Age: 46 Year
  Sex: Male

DRUGS (1)
  1. SORAFENIB OR PLACEBO [Suspect]
     Indication: PRODUCT USED FOR UNKNOWN INDICATION
     Route: 048
     Dates: start: 20090331

REACTIONS (1)
  - SKIN ULCER [None]
